FAERS Safety Report 21665452 (Version 1)
Quarter: 2022Q4

REPORT INFORMATION
  Report Type: Other
  Country: IN (occurrence: None)
  Receive Date: 20221201
  Receipt Date: 20221201
  Transmission Date: 20230112
  Serious: Yes (Death)
  Sender: FDA-Public Use
  Company Number: IN-ROCHE-3227736

PATIENT
  Age: 59 Year
  Sex: Female

DRUGS (1)
  1. PHESGO [Suspect]
     Active Substance: HYALURONIDASE-ZZXF\PERTUZUMAB\TRASTUZUMAB
     Indication: Breast cancer
     Dosage: INTERVAL 21 DAYS
     Route: 058
     Dates: start: 20220901, end: 20221103

REACTIONS (1)
  - Dengue fever [Fatal]
